FAERS Safety Report 5338663-9 (Version None)
Quarter: 2007Q2

REPORT INFORMATION
  Report Type: 
  Country: None (occurrence: None)
  Receive Date: 20070530
  Receipt Date: 20060524
  Transmission Date: 20071010
  Serious: No
  Sender: FDA-Public Use
  Company Number: A0606813A

PATIENT
  Age: 62 Year
  Sex: Female

DRUGS (4)
  1. VENTOLIN [Suspect]
     Indication: ASTHMA
     Dosage: 1PUFF AS REQUIRED
     Route: 055
     Dates: start: 20060524, end: 20060524
  2. PREMARIN [Concomitant]
  3. FLOVENT [Concomitant]
  4. MULTIVITAMIN [Concomitant]

REACTIONS (5)
  - ANXIETY [None]
  - BURNING SENSATION [None]
  - CHEST DISCOMFORT [None]
  - FLUSHING [None]
  - WHEEZING [None]
